FAERS Safety Report 14229058 (Version 1)
Quarter: 2017Q4

REPORT INFORMATION
  Report Type: Spontaneous
  Country: HU (occurrence: HU)
  Receive Date: 20171128
  Receipt Date: 20171128
  Transmission Date: 20180321
  Serious: Yes (Death, Hospitalization)
  Sender: FDA-Public Use
  Company Number: HU-ACTELION-A-CH2017-162797

PATIENT
  Age: 50 Year
  Sex: Female
  Weight: 66.4 kg

DRUGS (4)
  1. TRACLEER [Suspect]
     Active Substance: BOSENTAN
     Indication: PULMONARY ARTERIAL HYPERTENSION
     Dosage: 125 MG, BID
     Route: 048
     Dates: start: 20051219, end: 20160708
  2. REVATIO [Concomitant]
     Active Substance: SILDENAFIL CITRATE
     Indication: PULMONARY ARTERIAL HYPERTENSION
     Dosage: 20 MG, TID
     Route: 048
     Dates: start: 20141008, end: 20171021
  3. OPSUMIT [Suspect]
     Active Substance: MACITENTAN
     Indication: PULMONARY ARTERIAL HYPERTENSION
     Dosage: 10 MG, OD
     Route: 048
     Dates: start: 20160708, end: 20171021
  4. REMODULIN [Concomitant]
     Active Substance: TREPROSTINIL
     Indication: PULMONARY ARTERIAL HYPERTENSION
     Dosage: 30 NG/KG, PER MIN
     Route: 058
     Dates: start: 20141125, end: 20171021

REACTIONS (7)
  - Adenocarcinoma of colon [Fatal]
  - Metastases to liver [Fatal]
  - Haemodynamic instability [Unknown]
  - Large intestinal obstruction [Fatal]
  - Metastases to lung [Fatal]
  - Diarrhoea [Fatal]
  - Pyrexia [Fatal]
